FAERS Safety Report 5834912-9 (Version None)
Quarter: 2008Q3

REPORT INFORMATION
  Report Type: 
  Country: None (occurrence: None)
  Receive Date: 20080806
  Receipt Date: 20080725
  Transmission Date: 20090109
  Serious: Yes (Death, Other)
  Sender: FDA-Public Use
  Company Number: US-JNJFOC-20051205215

PATIENT
  Sex: Female
  Weight: 114.31 kg

DRUGS (24)
  1. REMICADE [Suspect]
     Route: 042
  2. REMICADE [Suspect]
     Route: 042
  3. REMICADE [Suspect]
     Route: 042
  4. REMICADE [Suspect]
     Route: 042
  5. REMICADE [Suspect]
     Route: 042
  6. REMICADE [Suspect]
     Route: 042
  7. REMICADE [Suspect]
     Route: 042
  8. REMICADE [Suspect]
     Route: 042
  9. REMICADE [Suspect]
     Route: 042
  10. REMICADE [Suspect]
     Route: 042
  11. REMICADE [Suspect]
     Route: 042
  12. REMICADE [Suspect]
     Route: 042
  13. REMICADE [Suspect]
     Route: 042
  14. REMICADE [Suspect]
     Route: 042
  15. REMICADE [Suspect]
     Route: 042
  16. REMICADE [Suspect]
     Route: 042
  17. REMICADE [Suspect]
     Route: 042
  18. REMICADE [Suspect]
     Route: 042
  19. REMICADE [Suspect]
     Route: 042
  20. REMICADE [Suspect]
     Indication: ARTHRITIS
     Route: 042
  21. METHOTREXATE [Concomitant]
     Indication: RHEUMATOID ARTHRITIS
  22. PREDNISONE TAB [Concomitant]
     Indication: RHEUMATOID ARTHRITIS
  23. DICLOFENAC SODIUM [Concomitant]
     Indication: RHEUMATOID ARTHRITIS
  24. MAXZIDE [Concomitant]

REACTIONS (21)
  - BASAL CELL CARCINOMA [None]
  - BRONCHITIS [None]
  - COAGULOPATHY [None]
  - CORONARY ARTERY DISEASE [None]
  - DEEP VEIN THROMBOSIS [None]
  - DEPRESSION [None]
  - DIABETES INSIPIDUS [None]
  - DIVERTICULAR PERFORATION [None]
  - FALL [None]
  - GASTRIC ULCER [None]
  - HIATUS HERNIA [None]
  - LUNG INFILTRATION [None]
  - LYMPHOPROLIFERATIVE DISORDER [None]
  - OEDEMA [None]
  - OESOPHAGITIS [None]
  - PANCYTOPENIA [None]
  - PNEUMONIA [None]
  - PSEUDOMONAL SEPSIS [None]
  - RENAL FAILURE [None]
  - UPPER RESPIRATORY TRACT INFECTION [None]
  - VERTIGO [None]
